FAERS Safety Report 23497286 (Version 1)
Quarter: 2024Q1

REPORT INFORMATION
  Report Type: Report from Study
  Country: US (occurrence: US)
  Receive Date: 20240208
  Receipt Date: 20240208
  Transmission Date: 20240410
  Serious: Yes (Other)
  Sender: FDA-Public Use
  Company Number: US-ABBVIE-5624467

PATIENT
  Sex: Female

DRUGS (3)
  1. HUMIRA [Suspect]
     Active Substance: ADALIMUMAB
     Indication: Product used for unknown indication
     Route: 058
     Dates: end: 20220201
  2. SKYRIZI [Suspect]
     Active Substance: RISANKIZUMAB-RZAA
     Indication: Product used for unknown indication
     Route: 058
     Dates: start: 202308
  3. SKYRIZI [Suspect]
     Active Substance: RISANKIZUMAB-RZAA
     Route: 058
     Dates: end: 202307

REACTIONS (7)
  - Wrist fracture [Recovered/Resolved]
  - Hernia [Unknown]
  - Injection site haemorrhage [Unknown]
  - Drug ineffective [Unknown]
  - Injection site haemorrhage [Unknown]
  - Gastrooesophageal reflux disease [Unknown]
  - Intestinal resection [Unknown]
